FAERS Safety Report 18252114 (Version 1)
Quarter: 2020Q3

REPORT INFORMATION
  Report Type: Spontaneous
  Country: US (occurrence: US)
  Receive Date: 20200910
  Receipt Date: 20200910
  Transmission Date: 20201103
  Serious: No
  Sender: FDA-Public Use
  Company Number: US-FARMAPROD-202003-0242

PATIENT
  Sex: Male
  Weight: 95.34 kg

DRUGS (3)
  1. FAMVIR [Concomitant]
     Active Substance: FAMCICLOVIR
     Dates: start: 20191011
  2. OXERVATE [Suspect]
     Active Substance: CENEGERMIN-BKBJ
     Route: 047
     Dates: start: 20200112
  3. PRED ACETATE [Concomitant]
     Dosage: 1 DROP TWICE DAILY ON EACH EYE
     Route: 047
     Dates: start: 20180904

REACTIONS (4)
  - Eye irritation [Unknown]
  - Eye pain [Unknown]
  - Photophobia [Recovering/Resolving]
  - Eyelid irritation [Unknown]
